FAERS Safety Report 5845166-1 (Version None)
Quarter: 2008Q3

REPORT INFORMATION
  Report Type: 
  Country: None (occurrence: None)
  Receive Date: 20080814
  Receipt Date: 20080806
  Transmission Date: 20090109
  Serious: Yes (Disabling, Other)
  Sender: FDA-Public Use
  Company Number: PHHY2008IE16568

PATIENT
  Age: 5 Year
  Sex: Male

DRUGS (2)
  1. RITALIN [Suspect]
     Indication: ATTENTION DEFICIT/HYPERACTIVITY DISORDER
     Dosage: 5 MG DAILY
     Route: 048
  2. RITALIN [Suspect]
     Dosage: 5 MG, BID
     Route: 048

REACTIONS (5)
  - ABNORMAL BEHAVIOUR [None]
  - AGITATION [None]
  - PARADOXICAL DRUG REACTION [None]
  - PSYCHOMOTOR HYPERACTIVITY [None]
  - SOCIAL AVOIDANT BEHAVIOUR [None]
